FAERS Safety Report 13403863 (Version 1)
Quarter: 2017Q2

REPORT INFORMATION
  Report Type: Spontaneous
  Country: US (occurrence: US)
  Receive Date: 20170405
  Receipt Date: 20170405
  Transmission Date: 20170830
  Serious: No
  Sender: FDA-Public Use
  Company Number: None

PATIENT

DRUGS (2)
  1. MASTISOL [Suspect]
     Active Substance: DEVICE
     Dosage: DROPS
  2. MAXITROL [Suspect]
     Active Substance: DEXAMETHASONE\NEOMYCIN SULFATE\POLYMYXIN B SULFATE
     Route: 061

REACTIONS (3)
  - Wrong technique in product usage process [None]
  - Product name confusion [None]
  - Wrong drug administered [None]
